FAERS Safety Report 13836761 (Version 3)
Quarter: 2017Q4

REPORT INFORMATION
  Report Type: Spontaneous
  Country: CH (occurrence: CH)
  Receive Date: 20170804
  Receipt Date: 20171212
  Transmission Date: 20180320
  Serious: Yes (Death, Hospitalization, Other)
  Sender: FDA-Public Use
  Company Number: CH-BRISTOL-MYERS SQUIBB COMPANY-BMS-2017-068149

PATIENT
  Age: 52 Year
  Sex: Female

DRUGS (7)
  1. EVEROLIMUS. [Concomitant]
     Active Substance: EVEROLIMUS
     Indication: HEPATOCELLULAR CARCINOMA
     Dosage: 0.5 MG, UNK
     Route: 042
     Dates: start: 201407
  2. NIVOLUMAB [Suspect]
     Active Substance: NIVOLUMAB
     Indication: HEPATOCELLULAR CARCINOMA
     Dosage: 200 MG, ONCE
     Route: 065
     Dates: start: 20170703, end: 20170703
  3. METHYLPREDNISOLONE. [Concomitant]
     Active Substance: METHYLPREDNISOLONE
     Indication: PRODUCT USED FOR UNKNOWN INDICATION
     Dosage: 500 MG, UNK
     Route: 042
  4. PREDNISONE                         /00044702/ [Concomitant]
     Active Substance: PREDNISONE
     Indication: PRODUCT USED FOR UNKNOWN INDICATION
     Dosage: 20 MG, UNK
     Route: 048
  5. NIVOLUMAB [Suspect]
     Active Substance: NIVOLUMAB
     Indication: METASTASES TO LUNG
     Route: 065
  6. SORAFENIB                          /01632502/ [Concomitant]
     Indication: PRODUCT USED FOR UNKNOWN INDICATION
     Dosage: UNK
     Route: 065
     Dates: start: 201611, end: 201702
  7. TACROLIMUS. [Concomitant]
     Active Substance: TACROLIMUS
     Indication: PRODUCT USED FOR UNKNOWN INDICATION
     Dosage: UNK
     Route: 065
     Dates: start: 20170724

REACTIONS (9)
  - Liver transplant rejection [Fatal]
  - Transaminases increased [Unknown]
  - Liver disorder [Unknown]
  - Vomiting [Unknown]
  - Cerebral haemorrhage [Fatal]
  - Abdominal pain upper [Unknown]
  - Product use in unapproved indication [Unknown]
  - Malaise [Unknown]
  - Intraventricular haemorrhage [Fatal]

NARRATIVE: CASE EVENT DATE: 20170719
